FAERS Safety Report 9252236 (Version 1)
Quarter: 2013Q2

REPORT INFORMATION
  Report Type: Spontaneous
  Country: US (occurrence: US)
  Receive Date: 20130424
  Receipt Date: 20130424
  Transmission Date: 20140414
  Serious: No
  Sender: FDA-Public Use
  Company Number: US-B.I. PHARMACEUTICALS,INC./RIDGEFIELD-2013-BI-10334BP

PATIENT
  Age: 80 Year
  Sex: Male

DRUGS (13)
  1. COMBIVENT [Suspect]
     Indication: CHRONIC OBSTRUCTIVE PULMONARY DISEASE
     Route: 055
     Dates: start: 2000
  2. CALCIUM PLUS D [Concomitant]
     Dosage: 600 MG
     Route: 048
  3. ZINC [Concomitant]
     Dosage: 50 MG
     Route: 048
  4. MULTIVITAMIN [Concomitant]
     Route: 048
  5. TAMSULOSIN [Concomitant]
     Route: 048
  6. RANITIDINE [Concomitant]
     Route: 048
  7. ASPIRIN [Concomitant]
     Dosage: 81 MG
     Route: 048
  8. FINASTERIDE [Concomitant]
     Dosage: 5 MG
     Route: 048
  9. GARLIC [Concomitant]
     Route: 048
  10. B COMPLEX [Concomitant]
     Route: 048
  11. ALEVE [Concomitant]
     Indication: ARTHRITIS
     Route: 048
  12. SYMBICORT [Concomitant]
     Route: 055
  13. VITAMIN D3 [Concomitant]
     Route: 048

REACTIONS (7)
  - Blood urine present [Recovered/Resolved]
  - Urinary retention [Recovered/Resolved]
  - Oedema peripheral [Not Recovered/Not Resolved]
  - Cystitis [Recovered/Resolved]
  - Urinary bladder haemorrhage [Recovered/Resolved]
  - Prostatomegaly [Not Recovered/Not Resolved]
  - Pain in extremity [Recovered/Resolved]
